FAERS Safety Report 9003585 (Version 3)
Quarter: 2013Q2

REPORT INFORMATION
  Report Type: Report from Study
  Country: US (occurrence: US)
  Receive Date: 20130108
  Receipt Date: 20130423
  Transmission Date: 20140414
  Serious: Yes (Death)
  Sender: FDA-Public Use
  Company Number: US-ABBOTT-13P-163-1032963-00

PATIENT
  Age: 52 Year
  Sex: Female
  Weight: 44.95 kg

DRUGS (5)
  1. CREON [Suspect]
     Indication: PANCREATITIS
     Dosage: WITH MEALS
  2. DEMEROL [Suspect]
     Indication: PAIN
     Dates: end: 20120101
  3. PHENERGAN [Concomitant]
     Indication: PRODUCT USED FOR UNKNOWN INDICATION
  4. METHADONE [Concomitant]
     Indication: PAIN
  5. DILAUDID [Concomitant]
     Indication: PRODUCT USED FOR UNKNOWN INDICATION

REACTIONS (7)
  - Overdose [Fatal]
  - Pain [Not Recovered/Not Resolved]
  - Fatigue [Unknown]
  - Stress ulcer [Unknown]
  - Abdominal pain upper [Unknown]
  - Nausea [Unknown]
  - Pancreatitis [Unknown]
